FAERS Safety Report 9117998 (Version 1)
Quarter: 2013Q1

REPORT INFORMATION
  Report Type: Report from Study
  Country: US (occurrence: US)
  Receive Date: 20130129
  Receipt Date: 20130129
  Transmission Date: 20140127
  Serious: No
  Sender: FDA-Public Use
  Company Number: US-ABBOTT-12P-163-0943701-00

PATIENT
  Age: 16 Year
  Sex: Male

DRUGS (3)
  1. HUMIRA 40 MG/0.8 ML PEN [Suspect]
     Indication: CROHN^S DISEASE
     Dates: start: 201205
  2. CALCIUM [Concomitant]
     Indication: MINERAL SUPPLEMENTATION
  3. TYLENOL [Concomitant]
     Indication: PAIN

REACTIONS (1)
  - Injection site erythema [Recovered/Resolved]
